FAERS Safety Report 17172639 (Version 1)
Quarter: 2019Q4

REPORT INFORMATION
  Report Type: Spontaneous
  Country: US (occurrence: US)
  Receive Date: 20191219
  Receipt Date: 20191219
  Transmission Date: 20200122
  Serious: No
  Sender: FDA-Public Use
  Company Number: US-SA-2019SA343683

PATIENT
  Age: 42 Year
  Sex: Female

DRUGS (1)
  1. TOUJEO MAX [Suspect]
     Active Substance: INSULIN GLARGINE
     Indication: TYPE 2 DIABETES MELLITUS
     Dosage: 40 UNITS IN THE AM AND 60 UNITS IN THE PM
     Route: 065

REACTIONS (2)
  - Exposure during pregnancy [Unknown]
  - Inappropriate schedule of product administration [Unknown]
